FAERS Safety Report 7542756-5 (Version None)
Quarter: 2011Q2

REPORT INFORMATION
  Report Type: 
  Country: None (occurrence: None)
  Receive Date: 20110613
  Receipt Date: 20110610
  Transmission Date: 20111010
  Serious: Yes (Other)
  Sender: FDA-Public Use
  Company Number: A0931159A

PATIENT
  Sex: Male

DRUGS (2)
  1. LUVOX [Suspect]
  2. WELLBUTRIN [Suspect]
     Dosage: 600MG PER DAY
     Route: 048

REACTIONS (5)
  - OVERDOSE [None]
  - MYOCLONUS [None]
  - DRUG INTERACTION [None]
  - SEROTONIN SYNDROME [None]
  - SPEECH DISORDER [None]
